FAERS Safety Report 25245743 (Version 1)
Quarter: 2025Q2

REPORT INFORMATION
  Report Type: Other
  Country: US (occurrence: US)
  Receive Date: 20250428
  Receipt Date: 20250428
  Transmission Date: 20250716
  Serious: Yes (Life-Threatening, Hospitalization, Other)
  Sender: B BRAUN
  Company Number: US-B.Braun Medical Inc.-2175736

PATIENT
  Age: 34 Year
  Sex: Male

DRUGS (2)
  1. CEFTRIAXONE SODIUM [Suspect]
     Active Substance: CEFTRIAXONE SODIUM
  2. MEROPENEM [Suspect]
     Active Substance: MEROPENEM

REACTIONS (2)
  - Pneumonia [Recovered/Resolved]
  - Stenotrophomonas infection [Recovered/Resolved]
